FAERS Safety Report 25427163 (Version 1)
Quarter: 2025Q2

REPORT INFORMATION
  Report Type: Spontaneous
  Country: US (occurrence: ES)
  Receive Date: 20250612
  Receipt Date: 20250612
  Transmission Date: 20250717
  Serious: Yes (Other)
  Sender: SANOFI AVENTIS
  Company Number: None

PATIENT
  Age: 66 Year
  Sex: Male

DRUGS (12)
  1. DOCETAXEL [Suspect]
     Active Substance: DOCETAXEL
  2. CYCLOPHOSPHAMIDE [Suspect]
     Active Substance: CYCLOPHOSPHAMIDE
     Indication: Hormone-refractory prostate cancer
     Route: 048
  3. GONADORELIN DIACETATE TETRAHYDRATE [Suspect]
     Active Substance: GONADORELIN DIACETATE TETRAHYDRATE
     Indication: Hormone-refractory prostate cancer
     Route: 065
  4. ETOPOSIDE [Suspect]
     Active Substance: ETOPOSIDE
  5. CARBOPLATIN [Suspect]
     Active Substance: CARBOPLATIN
  6. ABIRATERONE [Suspect]
     Active Substance: ABIRATERONE
  7. XTANDI [Suspect]
     Active Substance: ENZALUTAMIDE
     Indication: Prostate cancer metastatic
  8. BISOPROLOL FUMARATE [Concomitant]
     Active Substance: BISOPROLOL FUMARATE
  9. DEXAMETHASONE [Concomitant]
     Active Substance: DEXAMETHASONE
  10. OMEPRAZOLE [Concomitant]
     Active Substance: OMEPRAZOLE
  11. FENTANYL CITRATE [Concomitant]
     Active Substance: FENTANYL CITRATE
  12. ZOLPIDEM [Concomitant]
     Active Substance: ZOLPIDEM TARTRATE

REACTIONS (2)
  - Neoplasm progression [Unknown]
  - Renal impairment [Unknown]
